FAERS Safety Report 13687373 (Version 1)
Quarter: 2017Q2

REPORT INFORMATION
  Report Type: Spontaneous
  Country: US (occurrence: US)
  Receive Date: 20170623
  Receipt Date: 20170623
  Transmission Date: 20170830
  Serious: Yes (Hospitalization, Other)
  Sender: FDA-Public Use
  Company Number: US-ABBVIE-17K-163-2012226-00

PATIENT
  Sex: Male

DRUGS (6)
  1. IMURAN [Suspect]
     Active Substance: AZATHIOPRINE
     Route: 065
  2. HUMIRA [Suspect]
     Active Substance: ADALIMUMAB
     Indication: CROHN^S DISEASE
     Route: 058
  3. IMURAN [Suspect]
     Active Substance: AZATHIOPRINE
     Indication: PRODUCT USED FOR UNKNOWN INDICATION
     Route: 065
  4. HUMIRA [Suspect]
     Active Substance: ADALIMUMAB
     Route: 058
  5. IMURAN [Suspect]
     Active Substance: AZATHIOPRINE
     Dosage: DOSE DECREASED
     Route: 065
  6. METHOTREXATE. [Suspect]
     Active Substance: METHOTREXATE
     Indication: PRODUCT USED FOR UNKNOWN INDICATION
     Route: 065

REACTIONS (12)
  - Small intestinal obstruction [Unknown]
  - Colitis ulcerative [Recovered/Resolved]
  - Adverse drug reaction [Unknown]
  - Clostridium difficile colitis [Unknown]
  - Gastrointestinal ulcer [Unknown]
  - Drug specific antibody present [Unknown]
  - Nosocomial infection [Unknown]
  - Ileostomy [Unknown]
  - Crohn^s disease [Unknown]
  - Postoperative ileus [Unknown]
  - Infection [Unknown]
  - Escherichia infection [Unknown]

NARRATIVE: CASE EVENT DATE: 2013
